FAERS Safety Report 16474346 (Version 2)
Quarter: 2019Q4

REPORT INFORMATION
  Report Type: Spontaneous
  Country: US (occurrence: US)
  Receive Date: 20190625
  Receipt Date: 20191115
  Transmission Date: 20200122
  Serious: No
  Sender: FDA-Public Use
  Company Number: US-PFIZER INC-2019266777

PATIENT
  Age: 73 Year
  Sex: Male
  Weight: 77 kg

DRUGS (4)
  1. LYRICA [Suspect]
     Active Substance: PREGABALIN
     Indication: NECK PAIN
  2. LYRICA [Suspect]
     Active Substance: PREGABALIN
     Indication: MERALGIA PARAESTHETICA
     Dosage: UNK, 2X/DAY, [150 MG IN AM + MAYBE 2ND 150 MG OR 75 MG IN PM (NOON TO 2 PM) DEPENDING ON PAIN]
  3. LYRICA [Suspect]
     Active Substance: PREGABALIN
     Indication: FIBROMYALGIA
     Dosage: 150 MG, 2X/DAY
     Route: 048
  4. LYRICA [Suspect]
     Active Substance: PREGABALIN
     Indication: SPINAL OSTEOARTHRITIS

REACTIONS (4)
  - Drug ineffective [Unknown]
  - Middle insomnia [Unknown]
  - Product dose omission [Unknown]
  - Fibromyalgia [Unknown]
